FAERS Safety Report 26144544 (Version 2)
Quarter: 2025Q4

REPORT INFORMATION
  Report Type: Spontaneous
  Country: US (occurrence: US)
  Receive Date: 20251211
  Receipt Date: 20251226
  Transmission Date: 20260117
  Serious: Yes (Other)
  Sender: NOVARTIS
  Company Number: US-002147023-NVSC2025US188308

PATIENT
  Age: 73 Year
  Sex: Female
  Weight: 54.4 kg

DRUGS (1)
  1. KISQALI [Suspect]
     Active Substance: RIBOCICLIB SUCCINATE
     Indication: Breast cancer stage III
     Dosage: 400 MG, QD
     Route: 048
     Dates: start: 20250124, end: 20250801

REACTIONS (3)
  - Rash [Recovered/Resolved]
  - Contusion [Recovered/Resolved]
  - Oedema peripheral [Unknown]

NARRATIVE: CASE EVENT DATE: 20250612
